FAERS Safety Report 7338043-0 (Version None)
Quarter: 2011Q1

REPORT INFORMATION
  Report Type: 
  Country: None (occurrence: None)
  Receive Date: 20110308
  Receipt Date: 20110222
  Transmission Date: 20110831
  Serious: Yes (Other)
  Sender: FDA-Public Use
  Company Number: PHHY2011AR14535

PATIENT
  Sex: Female

DRUGS (1)
  1. DIOVAN [Suspect]
     Indication: BLOOD PRESSURE
     Dosage: 1 DF, QD
     Dates: start: 20110220

REACTIONS (5)
  - CHEST DISCOMFORT [None]
  - BRONCHOSPASM [None]
  - COUGH [None]
  - INCREASED UPPER AIRWAY SECRETION [None]
  - THROAT IRRITATION [None]
